FAERS Safety Report 6624734-3 (Version None)
Quarter: 2010Q1

REPORT INFORMATION
  Report Type: 
  Country: None (occurrence: None)
  Receive Date: 20100305
  Receipt Date: 20100219
  Transmission Date: 20100710
  Serious: Yes (Death)
  Sender: FDA-Public Use
  Company Number: JP-2010-0093

PATIENT
  Age: 70 Year
  Sex: Male

DRUGS (4)
  1. NAVELBINE [Suspect]
     Indication: LUNG CARCINOMA CELL TYPE UNSPECIFIED STAGE IV
     Dosage: 37 MG IV
     Route: 042
     Dates: start: 20091214, end: 20100106
  2. GEMZAR [Suspect]
     Indication: LUNG CARCINOMA CELL TYPE UNSPECIFIED STAGE IV
     Dosage: 1500 MG IV
     Route: 042
     Dates: start: 20091214, end: 20100106
  3. ONDANSETRON [Concomitant]
  4. DECADRON [Concomitant]

REACTIONS (4)
  - ANAPHYLACTIC SHOCK [None]
  - BRONCHOSPASM [None]
  - CYANOSIS [None]
  - PLATELET COUNT DECREASED [None]
